FAERS Safety Report 10572997 (Version 4)
Quarter: 2015Q1

REPORT INFORMATION
  Report Type: Spontaneous
  Country: US (occurrence: US)
  Receive Date: 20141110
  Receipt Date: 20150219
  Transmission Date: 20150720
  Serious: Yes (Other)
  Sender: FDA-Public Use
  Company Number: US-UCBSA-2014014083

PATIENT
  Age: 78 Year
  Sex: Female
  Weight: 91 kg

DRUGS (2)
  1. NEUPRO [Suspect]
     Active Substance: ROTIGOTINE
     Indication: PARKINSON^S DISEASE
     Dosage: 2 MG, 1-2 DAYS
     Route: 062
     Dates: start: 20140702, end: 2014
  2. XANAX [Concomitant]
     Active Substance: ALPRAZOLAM
     Indication: ANXIETY

REACTIONS (9)
  - Fall [Not Recovered/Not Resolved]
  - Stomach mass [Not Recovered/Not Resolved]
  - Nervous system disorder [Not Recovered/Not Resolved]
  - Myalgia [Not Recovered/Not Resolved]
  - Parkinson^s disease [Recovered/Resolved]
  - Contusion [Not Recovered/Not Resolved]
  - Pain [Recovered/Resolved]
  - Drug dose omission [Unknown]
  - Wrong technique in drug usage process [Unknown]

NARRATIVE: CASE EVENT DATE: 2014
